FAERS Safety Report 7465495-8 (Version None)
Quarter: 2011Q2

REPORT INFORMATION
  Report Type: 
  Country: None (occurrence: None)
  Receive Date: 20110428
  Receipt Date: 20110418
  Transmission Date: 20111010
  Serious: Yes (Death)
  Sender: FDA-Public Use
  Company Number: 20110310

PATIENT
  Sex: Male

DRUGS (1)
  1. HYDRALAZINE HCL [Suspect]
     Dosage: INJECTION NOS

REACTIONS (7)
  - HEPATIC INFECTION BACTERIAL [None]
  - ANAEMIA [None]
  - RENAL FAILURE [None]
  - CARDIAC INFECTION [None]
  - BACTERIAL INFECTION [None]
  - AUTOIMMUNE DISORDER [None]
  - LUNG INFECTION [None]
